FAERS Safety Report 16667200 (Version 2)
Quarter: 2019Q3

REPORT INFORMATION
  Report Type: Spontaneous
  Country: JP (occurrence: JP)
  Receive Date: 20190805
  Receipt Date: 20190930
  Transmission Date: 20191004
  Serious: No
  Sender: FDA-Public Use
  Company Number: JP-BAYER-2019-139526

PATIENT
  Age: 67 Year
  Sex: Female
  Weight: 64.7 kg

DRUGS (15)
  1. SAMSCA [Suspect]
     Active Substance: TOLVAPTAN
     Indication: CONGENITAL CYSTIC KIDNEY DISEASE
     Dosage: 60 MG, QD, IN THE MORNING
     Route: 048
     Dates: start: 20150617, end: 20151123
  2. SAMSCA [Suspect]
     Active Substance: TOLVAPTAN
     Indication: CONGENITAL CYSTIC KIDNEY DISEASE
     Dosage: 45 MG, QD, IN THE MORNING
     Route: 048
     Dates: start: 20150429, end: 20150616
  3. SAMSCA [Suspect]
     Active Substance: TOLVAPTAN
     Indication: CONGENITAL CYSTIC KIDNEY DISEASE
     Dosage: 15 MG, QD, IN THE EVENING
     Route: 048
     Dates: start: 20150429, end: 20151123
  4. SAMSCA [Suspect]
     Active Substance: TOLVAPTAN
     Indication: CONGENITAL CYSTIC KIDNEY DISEASE
     Dosage: DAILY DOSE 90 MG, DIVIDED TWO DOSES
     Route: 048
     Dates: start: 20151124, end: 20160308
  5. MEVALOTIN [Concomitant]
     Active Substance: PRAVASTATIN SODIUM
     Indication: DYSLIPIDAEMIA
     Dosage: 10 MG
  6. EQUA [Concomitant]
     Active Substance: VILDAGLIPTIN
     Indication: DIABETES MELLITUS
     Dosage: 50 MG
  7. SAMSCA [Suspect]
     Active Substance: TOLVAPTAN
     Indication: CONGENITAL CYSTIC KIDNEY DISEASE
     Dosage: 22.5 MG, QD, IN THE MORNING
     Route: 048
     Dates: start: 20150224, end: 20150310
  8. SAMSCA [Suspect]
     Active Substance: TOLVAPTAN
     Indication: CONGENITAL CYSTIC KIDNEY DISEASE
     Dosage: DAILY DOSE 105 MG, DIVIDED TWO DOSES
     Route: 048
     Dates: start: 20160309, end: 20180718
  9. FEBURIC [Concomitant]
     Active Substance: FEBUXOSTAT
     Indication: HYPERURICAEMIA
     Dosage: 20 MG
  10. NU-LOTAN [Concomitant]
     Active Substance: LOSARTAN POTASSIUM
     Indication: PRODUCT USED FOR UNKNOWN INDICATION
     Dosage: 25 MG
  11. GLUCOBAY [Suspect]
     Active Substance: ACARBOSE
     Indication: DIABETES MELLITUS
     Dosage: 3 DF, QD
     Route: 048
     Dates: start: 20150226, end: 20150428
  12. SAMSCA [Suspect]
     Active Substance: TOLVAPTAN
     Indication: CONGENITAL CYSTIC KIDNEY DISEASE
     Dosage: 37.5 MG, QD, IN THE MORNING
     Route: 048
     Dates: start: 20150311, end: 20150428
  13. KREMEZIN [Concomitant]
     Active Substance: ACTIVATED CHARCOAL
     Indication: CHRONIC KIDNEY DISEASE
     Dosage: 2 G
  14. SAMSCA [Suspect]
     Active Substance: TOLVAPTAN
     Indication: CONGENITAL CYSTIC KIDNEY DISEASE
     Dosage: 7.5 MG, QD, IN THE EVENING
     Route: 048
     Dates: start: 20150223, end: 20150428
  15. VOGLIBOSE [Concomitant]
     Active Substance: VOGLIBOSE
     Indication: DIABETES MELLITUS
     Dosage: 0.3 MG
     Dates: end: 20150225

REACTIONS (4)
  - Flatulence [Recovered/Resolved]
  - Pollakiuria [Recovering/Resolving]
  - Insomnia [Recovering/Resolving]
  - Nausea [Recovering/Resolving]

NARRATIVE: CASE EVENT DATE: 201502
